FAERS Safety Report 24939153 (Version 1)
Quarter: 2025Q1

REPORT INFORMATION
  Report Type: Spontaneous
  Country: US (occurrence: US)
  Receive Date: 20250206
  Receipt Date: 20250206
  Transmission Date: 20250409
  Serious: No
  Sender: PFIZER
  Company Number: US-PFIZER INC-202500026529

PATIENT
  Age: 54 Year
  Sex: Female
  Weight: 54.43 kg

DRUGS (1)
  1. PAXLOVID [Suspect]
     Active Substance: NIRMATRELVIR\RITONAVIR
     Indication: COVID-19 treatment
     Dates: start: 20240929

REACTIONS (7)
  - Vertigo [Recovered/Resolved with Sequelae]
  - Hypertension [Recovered/Resolved]
  - Vision blurred [Not Recovered/Not Resolved]
  - Headache [Unknown]
  - Sensory disturbance [Recovering/Resolving]
  - Anxiety [Not Recovered/Not Resolved]
  - Depression [Not Recovered/Not Resolved]

NARRATIVE: CASE EVENT DATE: 20240930
